FAERS Safety Report 14503072 (Version 2)
Quarter: 2018Q1

REPORT INFORMATION
  Report Type: Spontaneous
  Country: US (occurrence: US)
  Receive Date: 20180208
  Receipt Date: 20180312
  Transmission Date: 20180509
  Serious: No
  Sender: FDA-Public Use
  Company Number: US-PFIZER INC-2016365333

PATIENT
  Age: 32 Year
  Sex: Female

DRUGS (1)
  1. LYRICA [Suspect]
     Active Substance: PREGABALIN
     Dosage: 300 MG, UNK (300MG/QTY 90/DAY SUPPLY 30)

REACTIONS (2)
  - Prescribed overdose [Unknown]
  - Obesity [Unknown]
